FAERS Safety Report 11133224 (Version 3)
Quarter: 2016Q2

REPORT INFORMATION
  Report Type: Report from Study
  Country: US (occurrence: US)
  Receive Date: 20150522
  Receipt Date: 20160517
  Transmission Date: 20160815
  Serious: Yes (Hospitalization, Other)
  Sender: FDA-Public Use
  Company Number: US-ACTELION-A-NJ2015-118262

PATIENT
  Age: 78 Year
  Sex: Female

DRUGS (13)
  1. ZETIA [Concomitant]
     Active Substance: EZETIMIBE
     Dosage: 10 MG, QD
  2. DRONEDARONE [Concomitant]
     Active Substance: DRONEDARONE
  3. PROZAC [Concomitant]
     Active Substance: FLUOXETINE HYDROCHLORIDE
     Dosage: 20 MG, QD
  4. ARICEPT [Concomitant]
     Active Substance: DONEPEZIL HYDROCHLORIDE
  5. MULTAQ [Concomitant]
     Active Substance: DRONEDARONE
     Dosage: 400 MG, BID
  6. CRESTOR [Concomitant]
     Active Substance: ROSUVASTATIN CALCIUM
     Dosage: 140 MG, QD
  7. TORSEMIDE. [Concomitant]
     Active Substance: TORSEMIDE
  8. WARFARIN [Concomitant]
     Active Substance: WARFARIN
  9. SYNTHROID [Concomitant]
     Active Substance: LEVOTHYROXINE SODIUM
     Dosage: 75 MCG, QD
  10. ADCIRCA [Concomitant]
     Active Substance: TADALAFIL
     Dosage: 40 MG, QD
  11. ASPIRIN. [Concomitant]
     Active Substance: ASPIRIN
  12. MACITENTAN [Suspect]
     Active Substance: MACITENTAN
     Indication: PULMONARY ARTERIAL HYPERTENSION
     Dosage: 10 MG, QD
     Route: 048
  13. METOPROLOL. [Concomitant]
     Active Substance: METOPROLOL
     Dosage: 50 MG, QD

REACTIONS (10)
  - Influenza [Unknown]
  - Atrial fibrillation [Unknown]
  - Diarrhoea [Unknown]
  - Supraventricular tachycardia [Unknown]
  - Dyspnoea [Recovering/Resolving]
  - Nausea [Unknown]
  - Dehydration [Unknown]
  - Gastroenteritis [Unknown]
  - Vomiting [Unknown]
  - Fluid retention [Unknown]

NARRATIVE: CASE EVENT DATE: 20150513
